FAERS Safety Report 6975101-4 (Version None)
Quarter: 2010Q3

REPORT INFORMATION
  Report Type: 
  Country: None (occurrence: None)
  Receive Date: 20100910
  Receipt Date: 20090126
  Transmission Date: 20110219
  Serious: No
  Sender: FDA-Public Use
  Company Number: US-WYE-H07957709

PATIENT
  Age: 44 Year
  Sex: Female

DRUGS (3)
  1. PRISTIQ [Suspect]
     Indication: DEPRESSION
     Dosage: UNKNOWN
     Route: 048
     Dates: start: 20081212, end: 20081226
  2. LUNESTA [Suspect]
     Indication: INSOMNIA
     Dosage: 3-4.5 MG
     Route: 048
     Dates: start: 20081219
  3. LEXAPRO [Suspect]
     Indication: DEPRESSION
     Dosage: UNKNOWN
     Route: 048
     Dates: start: 20081212, end: 20081226

REACTIONS (3)
  - DIARRHOEA [None]
  - DYSPEPSIA [None]
  - MIDDLE INSOMNIA [None]
